FAERS Safety Report 11251963 (Version 2)
Quarter: 2015Q3

REPORT INFORMATION
  Report Type: Spontaneous
  Country: US (occurrence: US)
  Receive Date: 20150708
  Receipt Date: 20150903
  Transmission Date: 20151125
  Serious: No
  Sender: FDA-Public Use
  Company Number: US-ELI_LILLY_AND_COMPANY-US201211003008

PATIENT
  Sex: Female

DRUGS (5)
  1. PROZAC [Suspect]
     Active Substance: FLUOXETINE HYDROCHLORIDE
     Indication: ANXIETY
     Dosage: 40 MG, QD
  2. CYMBALTA [Suspect]
     Active Substance: DULOXETINE HYDROCHLORIDE
     Dosage: 90 MG PER DAY (60MG IN THE MORNING AND 30MG IN THE EVENING)
  3. CYMBALTA [Suspect]
     Active Substance: DULOXETINE HYDROCHLORIDE
     Indication: ANXIETY
     Dosage: 30 MG, UNK
     Dates: start: 2011
  4. CYMBALTA [Suspect]
     Active Substance: DULOXETINE HYDROCHLORIDE
     Dosage: 90 MG PER DAY (60MG IN THE MORNING AND 30MG IN THE EVENING)
     Dates: start: 20121105
  5. CYMBALTA [Suspect]
     Active Substance: DULOXETINE HYDROCHLORIDE
     Dosage: 60 MG, QD

REACTIONS (11)
  - Drug withdrawal syndrome [Unknown]
  - Aggression [Unknown]
  - Anxiety [Unknown]
  - Chest discomfort [Unknown]
  - Crying [Unknown]
  - Drug ineffective [Unknown]
  - Stress [Unknown]
  - Chest pain [Unknown]
  - Malaise [Unknown]
  - Fear [Unknown]
  - Panic attack [Unknown]
